FAERS Safety Report 6417201-3 (Version None)
Quarter: 2009Q4

REPORT INFORMATION
  Report Type: 
  Country: None (occurrence: None)
  Receive Date: 20091028
  Receipt Date: 20091021
  Transmission Date: 20100525
  Serious: Yes (Disabling, Other)
  Sender: FDA-Public Use
  Company Number: GB-B.I. PHARMACEUTICALS,INC./RIDGEFIELD-2009-UK-00601UK

PATIENT
  Age: 68 Year
  Sex: Male
  Weight: 91 kg

DRUGS (10)
  1. ASPIRIN AND DIPYRIDAMOLE [Suspect]
     Indication: TRANSIENT ISCHAEMIC ATTACK
     Dosage: 1 DOSAGE FORM TWICE DAILY
     Route: 048
     Dates: start: 20081001, end: 20090301
  2. DOMPERIDONE [Concomitant]
     Dosage: 30 MG
  3. IRBESARTAN [Concomitant]
     Dosage: 300 MG
  4. LANTUS [Concomitant]
  5. NOVORAPID [Concomitant]
  6. SIMVASTATIN [Concomitant]
     Dosage: 20 MG
  7. HYDROXOCOBALAMIN [Concomitant]
     Dosage: 1 MG
     Route: 030
  8. METOCLOPRAMIDE [Concomitant]
     Dosage: 30 MG
  9. QUININE SULPHATE [Concomitant]
     Dosage: 200 MG
  10. ALBUTEROL [Concomitant]
     Dosage: 100MCG AS NECCESSARY.
     Route: 055

REACTIONS (1)
  - BLOOD GLUCOSE INCREASED [None]
